FAERS Safety Report 18560058 (Version 1)
Quarter: 2020Q4

REPORT INFORMATION
  Report Type: Spontaneous
  Country: US (occurrence: US)
  Receive Date: 20201128
  Receipt Date: 20201128
  Transmission Date: 20210114
  Serious: Yes (Life-Threatening)
  Sender: FDA-Public Use
  Company Number: None

PATIENT
  Age: 53 Year
  Sex: Female

DRUGS (1)
  1. METAMIZOLE [Suspect]
     Active Substance: METAMIZOLE

REACTIONS (3)
  - Agranulocytosis [None]
  - Liver function test increased [None]
  - COVID-19 [None]
